FAERS Safety Report 9213012 (Version 1)
Quarter: 2013Q1

REPORT INFORMATION
  Report Type: Spontaneous
  Country: US (occurrence: None)
  Receive Date: 20120827
  Receipt Date: 20120827
  Transmission Date: 20140127
  Serious: No
  Sender: FDA-Public Use
  Company Number: 351956

PATIENT
  Sex: 0

DRUGS (3)
  1. VICTOZA [Suspect]
     Indication: PRODUCT USED FOR UNKNOWN INDICATION
     Dosage: UNK, SUBCUTANEOUS
     Route: 058
     Dates: start: 201104
  2. METFORMIN (METFORMIN) [Concomitant]
  3. AMARYL (GLIMEPIRIDE) [Concomitant]

REACTIONS (1)
  - Injection site irritation [None]
